FAERS Safety Report 14074777 (Version 3)
Quarter: 2018Q1

REPORT INFORMATION
  Report Type: Spontaneous
  Country: FR (occurrence: FR)
  Receive Date: 20171010
  Receipt Date: 20180320
  Transmission Date: 20180508
  Serious: Yes (Death, Hospitalization, Other)
  Sender: FDA-Public Use
  Company Number: FR-BRISTOL-MYERS SQUIBB COMPANY-BMS-2017-089369

PATIENT
  Age: 53 Year
  Sex: Male

DRUGS (1)
  1. OPDIVO [Suspect]
     Active Substance: NIVOLUMAB
     Indication: NON-SMALL CELL LUNG CANCER
     Dosage: 3 MG/KG, Q2WK
     Route: 042
     Dates: start: 20170629

REACTIONS (10)
  - Haemolytic anaemia [Fatal]
  - Influenza like illness [Unknown]
  - Asthenia [Fatal]
  - Hyperthyroidism [Unknown]
  - Hyperthermia [Fatal]
  - Cortisol abnormal [Unknown]
  - Diabetes mellitus inadequate control [Unknown]
  - Lipase increased [Unknown]
  - General physical health deterioration [Fatal]
  - Renal failure [Unknown]

NARRATIVE: CASE EVENT DATE: 20170629
